FAERS Safety Report 12104004 (Version 2)
Quarter: 2016Q2

REPORT INFORMATION
  Report Type: Spontaneous
  Country: US (occurrence: US)
  Receive Date: 20160223
  Receipt Date: 20160425
  Transmission Date: 20160815
  Serious: No
  Sender: FDA-Public Use
  Company Number: US-009507513-1602USA009938

PATIENT
  Age: 25 Year
  Sex: Female
  Weight: 54.42 kg

DRUGS (1)
  1. NEXPLANON [Suspect]
     Active Substance: ETONOGESTREL
     Indication: CONTRACEPTION
     Dosage: UNK
     Route: 059
     Dates: start: 20150511

REACTIONS (7)
  - Uterine malposition [Unknown]
  - Metrorrhagia [Not Recovered/Not Resolved]
  - Pelvic fluid collection [Unknown]
  - Ovarian cyst [Unknown]
  - Ultrasound ovary abnormal [Unknown]
  - Coital bleeding [Unknown]
  - Acne [Not Recovered/Not Resolved]

NARRATIVE: CASE EVENT DATE: 2016
